FAERS Safety Report 19839866 (Version 1)
Quarter: 2021Q3

REPORT INFORMATION
  Report Type: Spontaneous
  Country: US (occurrence: US)
  Receive Date: 20210916
  Receipt Date: 20210916
  Transmission Date: 20211014
  Serious: Yes (Hospitalization, Other)
  Sender: FDA-Public Use
  Company Number: US-SUN PHARMACEUTICAL INDUSTRIES LTD-2021R1-310910

PATIENT
  Age: 62 Year
  Sex: Male

DRUGS (1)
  1. PREDNISONE. [Suspect]
     Active Substance: PREDNISONE
     Indication: ARTHRITIS
     Dosage: 10 MILLIGRAM, TID
     Route: 065

REACTIONS (4)
  - Leukocytosis [Recovering/Resolving]
  - Arthritis bacterial [Recovering/Resolving]
  - Condition aggravated [Unknown]
  - Bacteraemia [Recovering/Resolving]
